FAERS Safety Report 7089616-4 (Version None)
Quarter: 2010Q4

REPORT INFORMATION
  Report Type: 
  Country: None (occurrence: None)
  Receive Date: 20101108
  Receipt Date: 20101029
  Transmission Date: 20110411
  Serious: Yes (Hospitalization)
  Sender: FDA-Public Use
  Company Number: US-US-EMD SERONO, INC.-7025088

PATIENT
  Sex: Female
  Weight: 70 kg

DRUGS (2)
  1. REBIF [Suspect]
     Indication: MULTIPLE SCLEROSIS
     Route: 058
     Dates: start: 20100810
  2. DIOVAN [Concomitant]
     Indication: HYPERTENSION
     Dates: end: 20101001

REACTIONS (3)
  - FALL [None]
  - PATELLA FRACTURE [None]
  - TEARFULNESS [None]
